FAERS Safety Report 5319823-X (Version None)
Quarter: 2007Q2

REPORT INFORMATION
  Report Type: 
  Country: None (occurrence: None)
  Receive Date: 20070509
  Receipt Date: 20070430
  Transmission Date: 20071010
  Serious: Yes (Other)
  Sender: FDA-Public Use
  Company Number: PHEH2007US06621

PATIENT
  Age: 27 Year
  Sex: Female

DRUGS (11)
  1. ZELNORM [Suspect]
     Indication: CONSTIPATION
     Dosage: 6 MG, TID
     Dates: start: 20060101, end: 20070401
  2. OMACOR [Concomitant]
     Dosage: 4 MG, QD
  3. ATENOLOL [Concomitant]
     Dosage: 25 MG, UNK
  4. PREVACID [Concomitant]
     Dosage: 30 MG, UNK
  5. LANTUS [Concomitant]
     Dosage: 20 U, QD
  6. NIASPAN [Concomitant]
     Dosage: 750 MG, BID
  7. TROGLITAZONE [Concomitant]
  8. TRICOR [Concomitant]
  9. ACTOS [Concomitant]
  10. ZYRTEC-D [Concomitant]
  11. OVCON-50 [Concomitant]

REACTIONS (15)
  - ABDOMINAL PAIN [None]
  - ANOREXIA [None]
  - BLOOD TRIGLYCERIDES INCREASED [None]
  - DIABETES MELLITUS [None]
  - GALLBLADDER DISORDER [None]
  - HEADACHE [None]
  - HEPATIC ADENOMA [None]
  - NAUSEA [None]
  - NUCLEAR MAGNETIC RESONANCE IMAGING ABNORMAL [None]
  - PAIN [None]
  - PALPITATIONS [None]
  - PANCREATITIS [None]
  - PYREXIA [None]
  - ULTRASOUND ABDOMEN ABNORMAL [None]
  - VOMITING [None]
